FAERS Safety Report 19126096 (Version 1)
Quarter: 2021Q2

REPORT INFORMATION
  Report Type: Report from Study
  Country: US (occurrence: US)
  Receive Date: 20210412
  Receipt Date: 20210412
  Transmission Date: 20210717
  Serious: No
  Sender: FDA-Public Use
  Company Number: US-SUNOVION-2021SUN001143

PATIENT
  Age: 70 Year
  Sex: Male

DRUGS (3)
  1. LEVODOPA [Concomitant]
     Active Substance: LEVODOPA
     Dosage: UNK
  2. KYNMOBI [Suspect]
     Active Substance: APOMORPHINE HYDROCHLORIDE
     Dosage: 10 MG
     Route: 060
     Dates: start: 20210323, end: 20210323
  3. KYNMOBI [Suspect]
     Active Substance: APOMORPHINE HYDROCHLORIDE
     Indication: PARKINSON^S DISEASE
     Dosage: 15 MG
     Route: 060
     Dates: start: 20210324, end: 20210324

REACTIONS (10)
  - Abdominal pain upper [Recovered/Resolved]
  - Headache [Recovered/Resolved]
  - Dizziness [Recovered/Resolved]
  - Dyskinesia [Recovered/Resolved]
  - Eructation [Recovered/Resolved]
  - Somnolence [Recovered/Resolved]
  - Tongue movement disturbance [Recovered/Resolved]
  - Asthenia [Recovered/Resolved]
  - Glossitis [Recovered/Resolved]
  - Nausea [Recovered/Resolved]

NARRATIVE: CASE EVENT DATE: 20210323
